FAERS Safety Report 6383642-6 (Version None)
Quarter: 2009Q3

REPORT INFORMATION
  Report Type: 
  Country: None (occurrence: None)
  Receive Date: 20090928
  Receipt Date: 20090914
  Transmission Date: 20100115
  Serious: Yes (Hospitalization)
  Sender: FDA-Public Use
  Company Number: 2009AL005994

PATIENT
  Age: 31 Year
  Sex: Female

DRUGS (4)
  1. NIFEDIPINE [Suspect]
     Indication: PREMATURE LABOUR
     Dosage: 40 MG; PO
     Route: 048
  2. BETAMETHASONE [Concomitant]
  3. NICARDIPINE HYDROCHLORIDE [Concomitant]
  4. ATOSIBAN [Concomitant]

REACTIONS (29)
  - ACUTE PULMONARY OEDEMA [None]
  - AKINESIA [None]
  - BLOOD PRESSURE SYSTOLIC DECREASED [None]
  - BRAIN NATRIURETIC PEPTIDE INCREASED [None]
  - BREATH SOUNDS ABNORMAL [None]
  - C-REACTIVE PROTEIN INCREASED [None]
  - COMPUTERISED TOMOGRAM ABNORMAL [None]
  - DRUG EXPOSURE DURING PREGNANCY [None]
  - DRUG INEFFECTIVE FOR UNAPPROVED INDICATION [None]
  - EJECTION FRACTION DECREASED [None]
  - ENDOTRACHEAL INTUBATION COMPLICATION [None]
  - FORCEPS DELIVERY [None]
  - HYPOXIA [None]
  - LUNG CONSOLIDATION [None]
  - LUNG DISORDER [None]
  - LUNG NEOPLASM [None]
  - NO THERAPEUTIC RESPONSE [None]
  - OEDEMA PERIPHERAL [None]
  - PERICARDIAL EFFUSION [None]
  - PLEURAL EFFUSION [None]
  - PULMONARY ARTERIAL PRESSURE INCREASED [None]
  - PULMONARY OEDEMA [None]
  - PYREXIA [None]
  - RALES [None]
  - RESPIRATORY DISTRESS [None]
  - USE OF ACCESSORY RESPIRATORY MUSCLES [None]
  - VACUUM EXTRACTOR DELIVERY [None]
  - VENTRICULAR DYSFUNCTION [None]
  - WHITE BLOOD CELL COUNT INCREASED [None]
